FAERS Safety Report 6646001-4 (Version None)
Quarter: 2010Q1

REPORT INFORMATION
  Report Type: 
  Country: None (occurrence: None)
  Receive Date: 20100323
  Receipt Date: 20100311
  Transmission Date: 20100710
  Serious: Yes (Other)
  Sender: FDA-Public Use
  Company Number: JP-PFIZER INC-2010035036

PATIENT
  Age: 91 Year
  Sex: Female

DRUGS (1)
  1. ZOLOFT [Suspect]
     Route: 048
     Dates: start: 20081016

REACTIONS (1)
  - FAECES DISCOLOURED [None]
